FAERS Safety Report 4785880-2 (Version None)
Quarter: 2005Q4

REPORT INFORMATION
  Report Type: 
  Country: None (occurrence: None)
  Receive Date: 20051003
  Receipt Date: 20050608
  Transmission Date: 20060501
  Serious: Yes (Death)
  Sender: FDA-Public Use
  Company Number: US-ROCHE-407148

PATIENT
  Age: 47 Year
  Sex: Male
  Weight: 110.7 kg

DRUGS (8)
  1. PEG-INTERFERON ALFA 2A (RO 25-8310) [Suspect]
     Dosage: FORMULATION: LIQUID
     Route: 058
     Dates: start: 20041001
  2. RIBAVIRIN [Suspect]
     Route: 048
     Dates: start: 20041001
  3. QUININE [Concomitant]
     Dates: start: 20050101
  4. CALCIUM SUPPLEMENT [Concomitant]
     Dates: start: 20050104
  5. MONOPRIL [Concomitant]
  6. ROXICODONE [Concomitant]
  7. OXYCONTIN [Concomitant]
  8. AVINZA [Concomitant]

REACTIONS (2)
  - CARDIOMYOPATHY [None]
  - CORONARY ARTERY THROMBOSIS [None]
